FAERS Safety Report 11591044 (Version 1)
Quarter: 2015Q4

REPORT INFORMATION
  Report Type: Spontaneous
  Country: US (occurrence: US)
  Receive Date: 20151003
  Receipt Date: 20151003
  Transmission Date: 20160304
  Serious: Yes (Hospitalization, Other)
  Sender: FDA-Public Use
  Company Number: US-ACCORD-034063

PATIENT
  Age: 51 Year
  Sex: Male
  Weight: 100 kg

DRUGS (2)
  1. AMLODIPINE [Suspect]
     Active Substance: AMLODIPINE BESYLATE
     Dosage: 40 TABLETS OF 5 MG
  2. METOPROLOL [Suspect]
     Active Substance: METOPROLOL
     Dosage: 40 TABLETS OF 25 MG

REACTIONS (4)
  - Somnolence [Unknown]
  - Vomiting [Unknown]
  - Suicide attempt [Unknown]
  - Intentional overdose [Unknown]
